FAERS Safety Report 8069631-4 (Version None)
Quarter: 2012Q1

REPORT INFORMATION
  Report Type: 
  Country: None (occurrence: None)
  Receive Date: 20120125
  Receipt Date: 20120116
  Transmission Date: 20120608
  Serious: Yes (Hospitalization)
  Sender: FDA-Public Use
  Company Number: US-JNJFOC-20120105849

PATIENT
  Sex: Male
  Weight: 37.8 kg

DRUGS (3)
  1. MESALAMINE [Concomitant]
  2. REMICADE [Suspect]
     Route: 042
     Dates: start: 20111104
  3. REMICADE [Suspect]
     Indication: COLITIS ULCERATIVE
     Route: 042
     Dates: start: 20110624

REACTIONS (1)
  - COLITIS ULCERATIVE [None]
